FAERS Safety Report 9557771 (Version 3)
Quarter: 2013Q4

REPORT INFORMATION
  Report Type: Spontaneous
  Country: JP (occurrence: JP)
  Receive Date: 20130926
  Receipt Date: 20131212
  Transmission Date: 20140711
  Serious: Yes (Other)
  Sender: FDA-Public Use
  Company Number: PHHY2013JP105151

PATIENT
  Age: 80 Year
  Sex: Female
  Weight: 55 kg

DRUGS (4)
  1. CARBAMAZEPINE [Suspect]
     Indication: FACIAL PAIN
     Route: 048
  2. BACLOFEN [Suspect]
     Indication: FACIAL PAIN
     Dosage: 15 MG, UNK
     Route: 048
  3. BACLOFEN [Suspect]
     Dosage: 15 MG, UNK
     Route: 048
  4. PREGABALIN [Concomitant]
     Dosage: 150 MG, UNK
     Route: 048

REACTIONS (5)
  - Drug eruption [Recovering/Resolving]
  - Somnolence [Recovering/Resolving]
  - Trigeminal neuralgia [Recovered/Resolved]
  - Facial pain [Recovered/Resolved]
  - Sleep disorder [Unknown]
